FAERS Safety Report 5293875-8 (Version None)
Quarter: 2007Q2

REPORT INFORMATION
  Report Type: 
  Country: None (occurrence: None)
  Receive Date: 20070405
  Receipt Date: 20070326
  Transmission Date: 20071010
  Serious: Yes (Other)
  Sender: FDA-Public Use
  Company Number: 2007S1000081

PATIENT
  Age: 54 Year
  Sex: Female

DRUGS (1)
  1. SORIATANE [Suspect]
     Indication: DRUG USE FOR UNKNOWN INDICATION
     Dates: start: 19960701, end: 20060201

REACTIONS (3)
  - DYSPNOEA [None]
  - PULMONARY FIBROSIS [None]
  - UNEVALUABLE EVENT [None]
